FAERS Safety Report 4664461-5 (Version None)
Quarter: 2005Q2

REPORT INFORMATION
  Report Type: 
  Country: None (occurrence: None)
  Receive Date: 20050518
  Receipt Date: 20050509
  Transmission Date: 20051028
  Serious: Yes (Disabling)
  Sender: FDA-Public Use
  Company Number: PHBS2005IT06699

PATIENT
  Age: 61 Year
  Sex: Female

DRUGS (7)
  1. AROMASIN [Concomitant]
     Route: 065
  2. FARESTON [Concomitant]
     Route: 048
  3. MEGACE [Concomitant]
     Route: 048
  4. PAMIDRONATE DISODIUM [Suspect]
     Dosage: UNK, UNK
     Route: 042
     Dates: start: 20000101, end: 20030630
  5. ZOMETA [Suspect]
     Dosage: 4 MG, QMO
     Route: 042
     Dates: start: 20030201, end: 20040701
  6. CAPECITABINE [Concomitant]
     Dosage: 3000 MG/D
     Route: 048
  7. CAPECITABINE [Concomitant]
     Dosage: 3000 MG/D
     Route: 048

REACTIONS (5)
  - ASEPTIC NECROSIS BONE [None]
  - GINGIVAL INFECTION [None]
  - PAIN IN JAW [None]
  - TOOTH LOSS [None]
  - WOUND DEBRIDEMENT [None]
